FAERS Safety Report 12144014 (Version 7)
Quarter: 2018Q1

REPORT INFORMATION
  Report Type: Spontaneous
  Country: CA (occurrence: CA)
  Receive Date: 20160304
  Receipt Date: 20180216
  Transmission Date: 20180508
  Serious: Yes (Other)
  Sender: FDA-Public Use
  Company Number: CA-009507513-1602CAN011284

PATIENT
  Age: 53 Year
  Sex: Female

DRUGS (9)
  1. CHOLECALCIFEROL [Concomitant]
     Active Substance: CHOLECALCIFEROL
     Dosage: 100 IU, QD
  2. FOSAMAX [Suspect]
     Active Substance: ALENDRONATE SODIUM
     Indication: BONE DENSITY DECREASED
     Dosage: 70 MG, QW
     Route: 065
     Dates: start: 2001, end: 2013
  3. FOSAVANCE [Suspect]
     Active Substance: ALENDRONATE SODIUM\CHOLECALCIFEROL
     Indication: BONE DENSITY DECREASED
     Route: 065
  4. MOMETASONE FUROATE. [Concomitant]
     Active Substance: MOMETASONE FUROATE
     Dosage: 50 MICROGRAM, TWO DOSES DIE OR TWICE DAILY
     Route: 055
  5. BUDESONIDE. [Concomitant]
     Active Substance: BUDESONIDE
     Indication: ASTHMA
     Dosage: 200 MICROGRAM, UNK
     Route: 055
  6. ALENDRONATE SODIUM. [Suspect]
     Active Substance: ALENDRONATE SODIUM
     Indication: BONE DENSITY DECREASED
     Dosage: 70 MG, QW
     Route: 065
  7. CALCIUM CARBONATE (+) CALCIUM LACTATE GLUCONATE [Concomitant]
     Dosage: 500 MG, QD
  8. FOSAMAX [Suspect]
     Active Substance: ALENDRONATE SODIUM
     Dosage: UNK
     Route: 048
     Dates: start: 2013, end: 201308
  9. SYMBICORT [Concomitant]
     Active Substance: BUDESONIDE\FORMOTEROL FUMARATE DIHYDRATE
     Dosage: 12 ?G, BID
     Route: 055

REACTIONS (1)
  - Fibula fracture [Recovered/Resolved]

NARRATIVE: CASE EVENT DATE: 201401
